FAERS Safety Report 8579744 (Version 4)
Quarter: 2013Q1

REPORT INFORMATION
  Report Type: Report from Study
  Country: DE (occurrence: DE)
  Receive Date: 20120525
  Receipt Date: 20130329
  Transmission Date: 20140127
  Serious: Yes (Other)
  Sender: FDA-Public Use
  Company Number: DE-US-EMD SERONO, INC.-7134305

PATIENT
  Sex: Male
  Weight: 32 kg

DRUGS (8)
  1. SAIZEN [Suspect]
     Indication: GROWTH HORMONE DEFICIENCY
     Route: 058
     Dates: start: 200705, end: 200904
  2. SAIZEN [Suspect]
     Indication: HYPOPITUITARISM
     Route: 058
     Dates: start: 20100401, end: 20100929
  3. SAIZEN [Suspect]
     Route: 058
     Dates: start: 20100930, end: 20110409
  4. SAIZEN [Suspect]
     Route: 058
     Dates: start: 20110410, end: 20111009
  5. SAIZEN [Suspect]
     Route: 058
     Dates: start: 20111010
  6. HYDROCORTISONE [Concomitant]
     Indication: INTRACRANIAL PRESSURE INCREASED
     Route: 048
  7. ORFIRIL LONG [Concomitant]
     Indication: EPILEPSY
     Route: 048
  8. L-THYROXIN [Concomitant]
     Indication: HYPOPITUITARISM
     Route: 048

REACTIONS (1)
  - Neoplasm [Recovered/Resolved]
